FAERS Safety Report 6527832-8 (Version None)
Quarter: 2010Q1

REPORT INFORMATION
  Report Type: 
  Country: None (occurrence: None)
  Receive Date: 20100106
  Receipt Date: 20100104
  Transmission Date: 20100710
  Serious: Yes (Death, Hospitalization)
  Sender: FDA-Public Use
  Company Number: FR-SP-2009-05136

PATIENT
  Age: 79 Year
  Sex: Male

DRUGS (1)
  1. IMMUCYST [Suspect]
     Indication: BLADDER CANCER
     Dosage: EVERY 6 MONTHS
     Route: 043
     Dates: start: 20021201, end: 20050601

REACTIONS (2)
  - BLADDER CANCER RECURRENT [None]
  - BOVINE TUBERCULOSIS [None]
